FAERS Safety Report 20628046 (Version 2)
Quarter: 2022Q1

REPORT INFORMATION
  Report Type: Spontaneous
  Country: US (occurrence: US)
  Receive Date: 20220323
  Receipt Date: 20220324
  Transmission Date: 20220424
  Serious: No
  Sender: FDA-Public Use
  Company Number: US-BIOGEN-2021BI00990908

PATIENT
  Sex: Female

DRUGS (1)
  1. TYSABRI [Suspect]
     Active Substance: NATALIZUMAB
     Indication: Multiple sclerosis
     Route: 065
     Dates: start: 20100625

REACTIONS (5)
  - Gait disturbance [Not Recovered/Not Resolved]
  - Band sensation [Not Recovered/Not Resolved]
  - Visual acuity reduced [Unknown]
  - Mobility decreased [Unknown]
  - Confusional state [Unknown]
